FAERS Safety Report 5606437-7 (Version None)
Quarter: 2008Q1

REPORT INFORMATION
  Report Type: 
  Country: None (occurrence: None)
  Receive Date: 20080129
  Receipt Date: 20071101
  Transmission Date: 20080703
  Serious: No
  Sender: FDA-Public Use
  Company Number: A0693046A

PATIENT
  Age: 29 Year
  Sex: Female

DRUGS (12)
  1. WELLBUTRIN [Suspect]
     Indication: DEPRESSION
     Dosage: 75MG PER DAY
     Route: 048
     Dates: start: 20050101
  2. ACTIQ [Suspect]
     Route: 002
     Dates: start: 20070801, end: 20070901
  3. EFFEXOR XR [Suspect]
     Dosage: 300MG PER DAY
     Route: 048
     Dates: start: 20030101
  4. PAXIL [Suspect]
     Indication: DEPRESSION
     Dosage: 75MG PER DAY
     Route: 048
     Dates: start: 20050101
  5. DEPAKOTE ER [Concomitant]
     Dates: start: 20070401
  6. XANAX [Concomitant]
     Dates: start: 20030101
  7. AMBIEN [Concomitant]
     Dates: start: 20060101
  8. FLEXERIL [Concomitant]
     Dates: start: 20030101
  9. PROMETHAZINE [Concomitant]
     Dates: start: 20030101
  10. ADDERALL 10 [Concomitant]
  11. DILAUDID [Concomitant]
     Dates: start: 20030101
  12. FENTANYL [Concomitant]
     Dates: start: 20070401

REACTIONS (2)
  - DENTAL CARIES [None]
  - DRY MOUTH [None]
